FAERS Safety Report 9124175 (Version 1)
Quarter: 2013Q1

REPORT INFORMATION
  Report Type: Spontaneous
  Country: US (occurrence: US)
  Receive Date: 20130227
  Receipt Date: 20130227
  Transmission Date: 20140127
  Serious: Yes (Death, Other)
  Sender: FDA-Public Use
  Company Number: US-SANOFI-AVENTIS-2013SA016551

PATIENT
  Sex: Male

DRUGS (3)
  1. ZALTRAP [Suspect]
     Indication: COLON CANCER METASTATIC
     Route: 041
  2. ZALTRAP [Suspect]
     Indication: COLON CANCER METASTATIC
     Route: 041
  3. AVASTIN [Concomitant]

REACTIONS (3)
  - Death [Fatal]
  - Gastrointestinal haemorrhage [Unknown]
  - Haematotoxicity [Unknown]
